FAERS Safety Report 9893721 (Version 1)
Quarter: 2014Q1

REPORT INFORMATION
  Report Type: Spontaneous
  Country: DE (occurrence: CH)
  Receive Date: 20140213
  Receipt Date: 20140213
  Transmission Date: 20141002
  Serious: Yes (Hospitalization)
  Sender: FDA-Public Use
  Company Number: CH-FRI-1000054199

PATIENT
  Sex: Male

DRUGS (12)
  1. MEMANTINE [Suspect]
     Indication: DEMENTIA
     Dosage: 20 MG
     Route: 048
  2. PANTOPRAZOLE [Suspect]
     Indication: PROPHYLACTIC CHEMOTHERAPY
     Dosage: 20 MG
     Route: 048
     Dates: start: 20131209, end: 20131213
  3. METFORMINE [Suspect]
     Indication: TYPE 2 DIABETES MELLITUS
     Dosage: 1000 MG
     Route: 048
  4. MST [Suspect]
     Indication: PAIN
     Dosage: 10 MG
     Route: 048
  5. CYMBALTA [Suspect]
     Indication: ANTIDEPRESSANT THERAPY
     Dosage: 60 MG
     Route: 048
  6. SEROQUEL [Suspect]
     Indication: DEMENTIA
     Dosage: 200 MG
  7. HALDOL [Suspect]
     Indication: DEMENTIA
     Dosage: 1.5 MG
     Route: 048
  8. DISTRANEURIN [Suspect]
     Indication: SLEEP DISORDER
     Dosage: 300 MG
     Route: 048
  9. TILUR RETARD [Suspect]
     Indication: PAIN
     Dosage: 90 MG
     Route: 048
     Dates: start: 20131209, end: 20131213
  10. METO ZEROK [Concomitant]
     Indication: ATRIAL FIBRILLATION
     Dosage: 12.5 MG
     Route: 048
  11. SINTROM [Concomitant]
     Indication: ATRIAL FIBRILLATION
     Dosage: 1 MG
     Route: 048
  12. DAFALGAN [Concomitant]
     Indication: PAIN
     Dosage: 3000 MG
     Route: 048

REACTIONS (6)
  - Type I hypersensitivity [Recovered/Resolved]
  - Rash erythematous [Recovered/Resolved]
  - Delirium [Recovering/Resolving]
  - Renal failure chronic [Recovered/Resolved]
  - Hyperkalaemia [Recovered/Resolved]
  - Drug prescribing error [Recovered/Resolved]
